FAERS Safety Report 8330378-8 (Version None)
Quarter: 2012Q2

REPORT INFORMATION
  Report Type: 
  Country: None (occurrence: None)
  Receive Date: 20120502
  Receipt Date: 20120412
  Transmission Date: 20120825
  Serious: No
  Sender: FDA-Public Use
  Company Number: US-AMGEN-USASP2012009462

PATIENT
  Age: 67 Year
  Sex: Female
  Weight: 55.782 kg

DRUGS (24)
  1. ADVAIR DISKUS 100/50 [Concomitant]
     Dosage: 250-50 UG/DOSE, 2X/DAY (INHALE 1 PUFFS TWICE DAILY)
     Route: 045
     Dates: start: 20110930
  2. ALENDRONATE SODIUM [Concomitant]
     Dosage: 70 MG, WEEKLY
     Route: 048
     Dates: start: 20111207
  3. EXCEDRIN (MIGRAINE) [Concomitant]
     Dosage: 250-250-65 MG, UNK
     Route: 048
     Dates: start: 20110621
  4. THEOPHYLLINE [Concomitant]
     Dosage: 400 MG, 1X/DAY
     Route: 048
     Dates: start: 20090818
  5. ARAVA [Concomitant]
     Dosage: 20 MG, DAILY
     Route: 058
  6. ORENCIA [Concomitant]
     Dosage: UNK
  7. GABAPENTIN [Concomitant]
     Dosage: 100 MG, 3X/DAY
     Route: 048
     Dates: start: 20120117
  8. TRAZODONE HCL [Concomitant]
     Dosage: 50 MG, UNK
     Route: 048
     Dates: start: 20111005
  9. ACETAMINOPHEN [Concomitant]
     Dosage: 500 MG, UNK
     Route: 048
  10. BISMUTH SUBSALICYLATE [Concomitant]
     Dosage: UNK
  11. PRAVASTATIN SODIUM [Concomitant]
     Dosage: 10 MG, 1X/DAY
     Route: 048
     Dates: start: 20110926
  12. PREDNISONE [Concomitant]
     Dosage: 5 MG, 1X/DAY
     Route: 048
     Dates: start: 20100903
  13. ENBREL [Suspect]
     Indication: PRODUCT USED FOR UNKNOWN INDICATION
     Dosage: 50 MG, WEEKLY
     Route: 058
  14. DILTIAZEM HCL [Concomitant]
     Dosage: 240 MG, 1X/DAY
     Route: 048
     Dates: start: 20110701
  15. VENLAFAXINE HYDROCHLORIDE [Concomitant]
     Dosage: 75 MG, UNK
     Route: 048
     Dates: start: 20111005
  16. DIAZEPAM [Concomitant]
     Dosage: 5 MG, 2X/DAY
     Route: 048
  17. LEFLUNOMIDE [Concomitant]
     Dosage: 10 MG, UNK
     Route: 048
     Dates: start: 20100720
  18. OMEPRAZOLE [Concomitant]
     Dosage: 20 MG, UNK
     Route: 048
  19. IBUPROFEN [Concomitant]
     Dosage: 800 MG, 2X/DAY
     Route: 048
     Dates: start: 20120109
  20. IMMUNE GLOBULIN (HUMAN) [Concomitant]
     Dosage: 20 GM/200 ML, MONTHLY
     Route: 042
  21. TRAMADOL HYDROCHLORIDE [Concomitant]
     Indication: PAIN
     Dosage: 50 MG, UNK
     Route: 048
  22. XOPENEX [Concomitant]
     Indication: WHEEZING
     Dosage: 45 MCG/ACT, INHALE 2 PUFF(S) EVERY 6 HOURS AS NEEDED
     Dates: start: 20091109
  23. METFORMIN HCL [Concomitant]
     Dosage: 500 MG, UNK
     Route: 048
  24. VITAMIN D [Concomitant]
     Dosage: 1000 UNIT, 1X/DAY
     Route: 048
     Dates: start: 20120206

REACTIONS (1)
  - HEADACHE [None]
